FAERS Safety Report 8029984-X (Version None)
Quarter: 2012Q1

REPORT INFORMATION
  Report Type: 
  Country: None (occurrence: None)
  Receive Date: 20120109
  Receipt Date: 20120103
  Transmission Date: 20120608
  Serious: Yes (Other)
  Sender: FDA-Public Use
  Company Number: IT-JNJFOC-20120101688

PATIENT
  Age: 9 Year
  Sex: Male

DRUGS (6)
  1. EVEROLIMUS [Suspect]
     Indication: HEPATIC NEOPLASM MALIGNANT
     Route: 065
  2. MYCOPHENOLATE MOFETIL [Suspect]
     Indication: HEPATIC NEOPLASM MALIGNANT
     Route: 065
  3. BEVACIZUMAB [Suspect]
     Indication: HEPATIC NEOPLASM MALIGNANT
     Route: 042
  4. CISPLATIN [Suspect]
     Indication: HEPATIC NEOPLASM MALIGNANT
     Route: 065
  5. CYCLOPHOSPHAMIDE [Suspect]
     Indication: HEPATIC NEOPLASM MALIGNANT
     Route: 065
  6. DOXORUBICIN HCL [Suspect]
     Indication: HEPATIC NEOPLASM MALIGNANT
     Route: 042

REACTIONS (2)
  - LYMPHOPENIA [None]
  - EPISTAXIS [None]
